FAERS Safety Report 6371751-7 (Version None)
Quarter: 2009Q3

REPORT INFORMATION
  Report Type: 
  Country: None (occurrence: None)
  Receive Date: 20090923
  Receipt Date: 20090910
  Transmission Date: 20100115
  Serious: Yes (Other)
  Sender: FDA-Public Use
  Company Number: US-PFIZER INC-2009254062

PATIENT
  Sex: Female
  Weight: 86.168 kg

DRUGS (13)
  1. DETROL LA [Suspect]
     Indication: HYPERTONIC BLADDER
     Dosage: 4 MG, 1X/DAY
     Route: 048
     Dates: start: 20080101
  2. OXYBUTYNIN CHLORIDE [Suspect]
  3. PROZAC [Concomitant]
     Dosage: 20 MG, 1X/DAY
  4. MELOXICAM [Concomitant]
     Dosage: 15 MG, 1X/DAY
  5. TIMOLOL MALEATE [Concomitant]
     Dosage: 0.25 %, 2X/DAY 1 GTT
     Route: 047
  6. ZOCOR [Concomitant]
     Dosage: 40 MG, 1X/DAY (AT BEDTIME)
  7. TRAZODONE [Concomitant]
     Dosage: 150 MG, 1X/DAY (AT BEDTIME)
  8. ACETYLSALICYLIC ACID [Concomitant]
     Dosage: 81 MG, 1X/DAY
  9. PLAVIX [Concomitant]
     Dosage: 75 MG, 1X/DAY
  10. FISH OIL [Concomitant]
     Dosage: 1 G, 1X/DAY
  11. ASCORBIC ACID [Concomitant]
     Dosage: 1000 MG, 1X/DAY
  12. CALCIUM WITH VITAMIN D [Concomitant]
     Dosage: 500 MG-125 MG UNITS
  13. MULTI-VITAMINS [Concomitant]
     Dosage: UNK

REACTIONS (12)
  - ABDOMINAL PAIN [None]
  - BACK PAIN [None]
  - CONSTIPATION [None]
  - DIABETIC NEPHROPATHY [None]
  - DRUG INEFFECTIVE [None]
  - DRUG INTOLERANCE [None]
  - DRY EYE [None]
  - DRY MOUTH [None]
  - FOOT OPERATION [None]
  - URINARY INCONTINENCE [None]
  - URINARY TRACT INFECTION [None]
  - VISUAL FIELD DEFECT [None]
